FAERS Safety Report 6481650-8 (Version None)
Quarter: 2009Q4

REPORT INFORMATION
  Report Type: 
  Country: None (occurrence: None)
  Receive Date: 20091208
  Receipt Date: 20091130
  Transmission Date: 20100525
  Serious: Yes (Hospitalization)
  Sender: FDA-Public Use
  Company Number: CH-ELI_LILLY_AND_COMPANY-CH200911001611

PATIENT
  Sex: Female

DRUGS (1)
  1. FORTEO [Suspect]

REACTIONS (3)
  - ASTHENIA [None]
  - CEREBRAL DISORDER [None]
  - HYPOTONIA [None]
